FAERS Safety Report 5175862-3 (Version None)
Quarter: 2006Q4

REPORT INFORMATION
  Report Type: 
  Country: None (occurrence: None)
  Receive Date: 20061215
  Receipt Date: 20061204
  Transmission Date: 20070319
  Serious: Yes (Hospitalization)
  Sender: FDA-Public Use
  Company Number: PHRM2006FR03238

PATIENT
  Age: 20 Year
  Sex: Male
  Weight: 60 kg

DRUGS (12)
  1. ZOMETA [Suspect]
     Indication: METASTASES TO BONE
     Dosage: 4 MG, ONCE/SINGLE
     Route: 042
     Dates: start: 20061102, end: 20061102
  2. HYDREA [Suspect]
     Indication: METASTASES TO BONE
     Dosage: 500 MG, QD
     Route: 048
     Dates: start: 20061010, end: 20061105
  3. CALCIPRAT [Concomitant]
     Dosage: 500 MG, QD
     Route: 048
     Dates: end: 20061105
  4. VITAMIN D [Concomitant]
     Dosage: 400 IU PER DAY
  5. SKENAN [Concomitant]
     Dosage: 220 MG, BID
     Dates: end: 20061104
  6. MORPHINE [Concomitant]
     Route: 042
     Dates: start: 20061105
  7. CORTANCYL [Concomitant]
     Dosage: 10 MG DAILY
     Route: 048
     Dates: end: 20061104
  8. SOLU-MEDROL [Concomitant]
     Route: 042
     Dates: start: 20061105
  9. NEURONTIN [Concomitant]
     Dosage: 900 MG, TID
  10. OMEPRAZOLE [Concomitant]
     Dosage: 40 MG, QD
     Route: 048
  11. RIVOTRIL [Concomitant]
     Dosage: 20 DRP, TID
     Route: 048
  12. TRANXENE [Concomitant]
     Dosage: 10 MG DAILY

REACTIONS (4)
  - CHEILITIS [None]
  - ENTERAL NUTRITION [None]
  - MOUTH ULCERATION [None]
  - STOMATITIS [None]
